FAERS Safety Report 16552173 (Version 6)
Quarter: 2019Q4

REPORT INFORMATION
  Report Type: Report from Study
  Country: JP (occurrence: JP)
  Receive Date: 20190710
  Receipt Date: 20191213
  Transmission Date: 20200122
  Serious: Yes (Death, Life-Threatening, Hospitalization, Disabling)
  Sender: FDA-Public Use
  Company Number: JP-AMGEN-JPNNI2019088246

PATIENT
  Age: 16 Year
  Sex: Female
  Weight: 24 kg

DRUGS (20)
  1. BLINATUMOMAB [Suspect]
     Active Substance: BLINATUMOMAB
     Dosage: 5 MICROGRAM/SQ. METER, QD
     Route: 041
     Dates: start: 20190605, end: 20190612
  2. DAIPHEN [Concomitant]
     Active Substance: SULFAMETHOXAZOLE\TRIMETHOPRIM
     Dosage: 2 GRAM, QD
  3. DEXAMETHASONE. [Concomitant]
     Active Substance: DEXAMETHASONE
     Dosage: 5 MILLIGRAM, QD
     Route: 042
     Dates: start: 20190530, end: 20190530
  4. DECADRON [Concomitant]
     Active Substance: DEXAMETHASONE
     Indication: PROPHYLAXIS
     Dosage: UNK
     Dates: end: 20190530
  5. VFEND [Concomitant]
     Active Substance: VORICONAZOLE
     Dosage: 400 MILLIGRAM, QD
  6. CANCIDAS [Concomitant]
     Active Substance: CASPOFUNGIN ACETATE
     Dosage: 50 MILLIGRAM, QD
  7. DEXAMETHASONE. [Concomitant]
     Active Substance: DEXAMETHASONE
     Indication: PREMEDICATION
     Dosage: 10 MILLILITER, QD
     Route: 042
     Dates: start: 20190525, end: 20190530
  8. DEXAMETHASONE. [Concomitant]
     Active Substance: DEXAMETHASONE
     Dosage: 5 MILLIGRAM, QD
     Route: 042
     Dates: start: 20190604, end: 20190604
  9. K-SUPPLY [Concomitant]
     Active Substance: POTASSIUM CHLORIDE
     Dosage: 1200 MILLIGRAM, QD
  10. BLINATUMOMAB [Suspect]
     Active Substance: BLINATUMOMAB
     Indication: ACUTE LYMPHOCYTIC LEUKAEMIA REFRACTORY
     Dosage: 5 MICROGRAM/SQ. METER, QD
     Route: 041
     Dates: start: 20190530, end: 20190601
  11. DEXAMETHASONE. [Concomitant]
     Active Substance: DEXAMETHASONE
     Dosage: 5 MILLIGRAM, QD
     Route: 042
     Dates: start: 20190607, end: 20190607
  12. LANSOPRAZOLE. [Concomitant]
     Active Substance: LANSOPRAZOLE
     Dosage: 30 MILLIGRAM, QD
  13. NOVORAPID [Concomitant]
     Active Substance: INSULIN ASPART
     Dosage: UNK
  14. VALACICLOVIR [Concomitant]
     Active Substance: VALACYCLOVIR HYDROCHLORIDE
     Dosage: 1000 MILLIGRAM, QD
  15. VORICONAZOLE. [Concomitant]
     Active Substance: VORICONAZOLE
     Dosage: 400 MILLIGRAM, QD
     Route: 048
  16. MUCOSAL [AMBROXOL HYDROCHLORIDE] [Concomitant]
     Dosage: 45 MILLIGRAM, QD
  17. FEXOFENADINE HYDROCHLORIDE. [Concomitant]
     Active Substance: FEXOFENADINE HYDROCHLORIDE
     Dosage: 120 MILLIGRAM, QD
  18. DEXART [Concomitant]
     Active Substance: DEXAMETHASONE SODIUM PHOSPHATE
     Dosage: 2.96 MILLIGRAM
  19. DEXAMETHASONE. [Concomitant]
     Active Substance: DEXAMETHASONE
     Dosage: 10 MILLIGRAM, QD
     Route: 042
     Dates: start: 20190604, end: 20190604
  20. E KEPPRA [Concomitant]
     Active Substance: LEVETIRACETAM
     Dosage: 500 MILLIGRAM, QD

REACTIONS (16)
  - Anorectal disorder [Not Recovered/Not Resolved]
  - Altered state of consciousness [Not Recovered/Not Resolved]
  - Dysuria [Unknown]
  - Electroencephalogram abnormal [Not Recovered/Not Resolved]
  - Acute respiratory distress syndrome [Not Recovered/Not Resolved]
  - Bladder disorder [Not Recovered/Not Resolved]
  - Aphasia [Recovering/Resolving]
  - Seizure [Recovering/Resolving]
  - Seizure [Not Recovered/Not Resolved]
  - Laryngeal mass [Not Recovered/Not Resolved]
  - Nausea [Recovered/Resolved]
  - Pyrexia [Not Recovered/Not Resolved]
  - Acute lymphocytic leukaemia recurrent [Fatal]
  - Blood lactate dehydrogenase increased [Not Recovered/Not Resolved]
  - Loss of personal independence in daily activities [Unknown]
  - Injection site haemorrhage [Recovered/Resolved]

NARRATIVE: CASE EVENT DATE: 20190530
